FAERS Safety Report 16117369 (Version 1)
Quarter: 2019Q1

REPORT INFORMATION
  Report Type: Spontaneous
  Country: US (occurrence: US)
  Receive Date: 20190326
  Receipt Date: 20190326
  Transmission Date: 20190418
  Serious: No
  Sender: FDA-Public Use
  Company Number: US-CEDIPROF, INC.-2064608

PATIENT
  Age: 68 Year
  Sex: Female
  Weight: 56.82 kg

DRUGS (2)
  1. LEVOXYL [Concomitant]
     Active Substance: LEVOTHYROXINE SODIUM
     Route: 048
     Dates: start: 20180601
  2. LEVO-T [Suspect]
     Active Substance: LEVOTHYROXINE SODIUM
     Indication: HYPOTHYROIDISM
     Route: 048
     Dates: end: 20180531

REACTIONS (4)
  - Flatulence [Unknown]
  - Diarrhoea [Unknown]
  - Malaise [Unknown]
  - Abdominal pain upper [Unknown]

NARRATIVE: CASE EVENT DATE: 20180604
